FAERS Safety Report 15047611 (Version 1)
Quarter: 2018Q2

REPORT INFORMATION
  Report Type: Spontaneous
  Country: US (occurrence: US)
  Receive Date: 20180601
  Receipt Date: 20180601
  Transmission Date: 20180711
  Serious: Yes (Hospitalization)
  Sender: FDA-Public Use
  Company Number: None

PATIENT
  Age: 16 Year
  Sex: Male

DRUGS (9)
  1. AMOXICILLIN. [Concomitant]
     Active Substance: AMOXICILLIN
  2. PULMOZYME [Suspect]
     Active Substance: DORNASE ALFA
     Indication: CYSTIC FIBROSIS
     Dosage: 2.5MG/2.5MLNEB BID NEBULIZER
     Dates: start: 20170217
  3. NOVOLOG [Concomitant]
     Active Substance: INSULIN ASPART
  4. PREDNISONE. [Concomitant]
     Active Substance: PREDNISONE
  5. METRONIDAZOL [Concomitant]
     Active Substance: METRONIDAZOLE
  6. VORICONAZOLE. [Concomitant]
     Active Substance: VORICONAZOLE
  7. BDPEN [Concomitant]
  8. RANITIDINE. [Concomitant]
     Active Substance: RANITIDINE
  9. FLUTICASONE. [Concomitant]
     Active Substance: FLUTICASONE

REACTIONS (1)
  - Lung disorder [None]

NARRATIVE: CASE EVENT DATE: 201804
